FAERS Safety Report 8342469 (Version 2)
Quarter: 2013Q2

REPORT INFORMATION
  Report Type: Spontaneous
  Country: US (occurrence: None)
  Receive Date: 20111202
  Receipt Date: 20121203
  Transmission Date: 20140414
  Serious: Yes (Other)
  Sender: FDA-Public Use
  Company Number: 2011SP001283

PATIENT
  Age: 23 Year
  Sex: Female
  Weight: 100.7 kg

DRUGS (1)
  1. NUVARING [Suspect]
     Indication: CONTRACEPTION
     Dates: start: 20081209, end: 20090224

REACTIONS (5)
  - DEEP VEIN THROMBOSIS [None]
  - PAPILLOMA VIRAL INFECTION [None]
  - VAGINAL DISCHARGE [None]
  - Cervical dysplasia [None]
  - Vaginal disorder [None]
